FAERS Safety Report 8116677-3 (Version None)
Quarter: 2012Q1

REPORT INFORMATION
  Report Type: 
  Country: None (occurrence: None)
  Receive Date: 20120206
  Receipt Date: 20120124
  Transmission Date: 20120608
  Serious: Yes (Hospitalization, Other)
  Sender: FDA-Public Use
  Company Number: PHEH2011US011570

PATIENT
  Sex: Female
  Weight: 85.261 kg

DRUGS (6)
  1. COREG [Concomitant]
     Indication: CARDIAC DISORDER
     Dosage: 25 MG, BID
     Route: 048
  2. ONDANSETRON HCL [Concomitant]
     Indication: NAUSEA
     Dosage: 8 MG, MINUTES BEFORE IMANITIB
     Route: 048
     Dates: start: 20111111
  3. ALLOPURINOL [Concomitant]
     Dosage: 100 MG, QD
     Route: 048
     Dates: start: 20111111
  4. GLEEVEC [Suspect]
     Dosage: 200 MG (HALF TABLET), DAILY
  5. OMEPRAZOLE [Concomitant]
     Indication: DYSPEPSIA
     Dosage: 20 MG
  6. GLEEVEC [Suspect]
     Indication: CHRONIC MYELOID LEUKAEMIA
     Dosage: 400 MG, DAILY
     Route: 048
     Dates: start: 20111031

REACTIONS (8)
  - GENERALISED OEDEMA [None]
  - PERIORBITAL OEDEMA [None]
  - WEIGHT INCREASED [None]
  - NEOPLASM [None]
  - FLUID RETENTION [None]
  - FALL [None]
  - FOOT FRACTURE [None]
  - OEDEMA PERIPHERAL [None]
